FAERS Safety Report 21764819 (Version 3)
Quarter: 2023Q1

REPORT INFORMATION
  Report Type: Spontaneous
  Country: TW (occurrence: TW)
  Receive Date: 20221222
  Receipt Date: 20230105
  Transmission Date: 20230417
  Serious: Yes (Death)
  Sender: FDA-Public Use
  Company Number: TW-CHUGAI-2022050757

PATIENT
  Age: 82 Year
  Sex: Female
  Weight: 57 kg

DRUGS (5)
  1. ACTEMRA [Suspect]
     Active Substance: TOCILIZUMAB
     Indication: Rheumatoid arthritis
     Dosage: 162 MILLIGRAM, ONCE/WEEK
     Route: 058
     Dates: start: 20190125
  2. METHOTREXATE [Suspect]
     Active Substance: METHOTREXATE
     Indication: Rheumatoid arthritis
     Dosage: 15 MILLIGRAM, ONCE/WEEK, OVER 10 YEARS
     Route: 048
  3. METHOTREXATE [Suspect]
     Active Substance: METHOTREXATE
     Dosage: 15 MILLIGRAM, TIW
     Route: 048
  4. CELEBREX [Suspect]
     Active Substance: CELECOXIB
     Indication: Rheumatoid arthritis
     Dosage: 200 MILLIGRAM, BID, OVER 10 YEARS
     Route: 048
  5. FAMOTIDINE [Suspect]
     Active Substance: FAMOTIDINE
     Indication: Gastric disorder
     Dosage: 20 MILLIGRAM, QD
     Route: 048
     Dates: start: 202010

REACTIONS (1)
  - Cerebral haemorrhage [Fatal]

NARRATIVE: CASE EVENT DATE: 20221128
